FAERS Safety Report 9104463 (Version 1)
Quarter: 2013Q1

REPORT INFORMATION
  Report Type: Spontaneous
  Country: US (occurrence: US)
  Receive Date: 20130220
  Receipt Date: 20130220
  Transmission Date: 20140127
  Serious: No
  Sender: FDA-Public Use
  Company Number: US-PFIZER INC-2013061423

PATIENT
  Sex: Female
  Weight: 116.5 kg

DRUGS (5)
  1. ANTIVERT [Suspect]
  2. AVELOX [Suspect]
  3. DEMEROL [Suspect]
  4. NITROFURANTOIN [Suspect]
  5. ZOLEDRONIC ACID [Suspect]

REACTIONS (1)
  - Drug hypersensitivity [Unknown]
